FAERS Safety Report 14054437 (Version 1)
Quarter: 2017Q4

REPORT INFORMATION
  Report Type: Spontaneous
  Country: CH (occurrence: CH)
  Receive Date: 20171006
  Receipt Date: 20171006
  Transmission Date: 20180321
  Serious: Yes (Death, Other)
  Sender: FDA-Public Use
  Company Number: CH-AMGEN-CHESP2017149467

PATIENT
  Sex: Male

DRUGS (6)
  1. KYPROLIS [Suspect]
     Active Substance: CARFILZOMIB
     Indication: PLASMA CELL MYELOMA
     Dosage: 40 MG, DAY 1 AND 2
     Route: 042
     Dates: start: 20170529
  2. KYPROLIS [Suspect]
     Active Substance: CARFILZOMIB
     Dosage: 112 MG, UNK
     Route: 042
     Dates: start: 2017, end: 20170830
  3. XGEVA [Suspect]
     Active Substance: DENOSUMAB
     Indication: PRODUCT USED FOR UNKNOWN INDICATION
     Dosage: UNK
     Route: 065
     Dates: start: 20170612
  4. KYPROLIS [Suspect]
     Active Substance: CARFILZOMIB
     Dosage: 40 MG, UNK
     Route: 042
     Dates: start: 20170609
  5. DEXAMETHASONE. [Concomitant]
     Active Substance: DEXAMETHASONE
     Indication: PLASMA CELL MYELOMA
     Dosage: UNK
     Dates: start: 20170529
  6. KYPROLIS [Suspect]
     Active Substance: CARFILZOMIB
     Dosage: 112 MG, UNK
     Route: 042
     Dates: start: 20170606

REACTIONS (8)
  - C-reactive protein increased [Unknown]
  - Headache [Unknown]
  - Blood creatinine increased [Unknown]
  - Chills [Unknown]
  - Pyrexia [Unknown]
  - Spinal cord disorder [Unknown]
  - Asthenia [Unknown]
  - Death [Fatal]

NARRATIVE: CASE EVENT DATE: 201706
